FAERS Safety Report 8770751 (Version 2)
Quarter: 2012Q4

REPORT INFORMATION
  Report Type: 
  Country: GB (occurrence: GB)
  Receive Date: 20120906
  Receipt Date: 20121112
  Transmission Date: 20130627
  Serious: Yes (Death)
  Sender: FDA-Public Use
  Company Number: GB-PFIZER INC-2012218602

PATIENT
  Age: 47 Year
  Sex: Male
  Weight: 112 kg

DRUGS (15)
  1. INSPRA [Suspect]
     Dosage: UNK
  2. IVABRADINE [Suspect]
     Indication: HEART FAILURE
     Dosage: 7.5 mg, 2x/day
     Route: 048
     Dates: start: 20120118
  3. CARVEDILOL [Concomitant]
     Indication: IHD
     Dosage: 25 mg, 2x/day
     Dates: start: 2010
  4. CARVEDILOL [Concomitant]
     Indication: HEART FAILURE
  5. FUROSEMIDE [Concomitant]
     Indication: IHD
     Dosage: 40 mg, 1x/day
     Route: 048
     Dates: start: 2007
  6. FUROSEMIDE [Concomitant]
     Indication: HEART FAILURE
  7. NAPROXEN [Concomitant]
     Indication: IHD
     Dosage: 500 mg, 2x/day
     Route: 048
     Dates: start: 2011
  8. NAPROXEN [Concomitant]
     Indication: HEART FAILURE
  9. RAMIPRIL [Concomitant]
     Indication: IHD
     Dosage: 5 mg, 2x/day
     Route: 048
     Dates: start: 2003
  10. RAMIPRIL [Concomitant]
     Indication: HEART FAILURE
  11. ATORVASTATIN [Concomitant]
     Indication: IHD
     Dosage: 80 mg, 1x/day
     Route: 048
  12. ATORVASTATIN [Concomitant]
     Indication: HEART FAILURE
  13. CLOPIDOGREL [Concomitant]
     Indication: IHD
     Dosage: 75 mg, 1x/day
     Dates: start: 2006
  14. CLOPIDOGREL [Concomitant]
     Indication: HEART FAILURE
  15. ASPIRIN [Concomitant]
     Dosage: UNK

REACTIONS (2)
  - Sudden death [Fatal]
  - Circulatory collapse [Fatal]
